FAERS Safety Report 8862136 (Version 2)
Quarter: 2013Q1

REPORT INFORMATION
  Report Type: Spontaneous
  Country: US (occurrence: US)
  Receive Date: 20121026
  Receipt Date: 20130108
  Transmission Date: 20140127
  Serious: No
  Sender: FDA-Public Use
  Company Number: US-009507513-1210USA003492

PATIENT
  Age: 21 Year
  Sex: Female

DRUGS (1)
  1. IMPLANON [Suspect]
     Indication: CONTRACEPTION
     Dosage: 1 ROD, FOR UP TO 3 YEARS
     Route: 059
     Dates: start: 20120419, end: 201209

REACTIONS (6)
  - Implant site mass [Unknown]
  - Dizziness [Unknown]
  - Nausea [Unknown]
  - Implant site pruritus [Unknown]
  - Implant site bruising [Unknown]
  - Device breakage [Unknown]
